FAERS Safety Report 25288057 (Version 1)
Quarter: 2025Q2

REPORT INFORMATION
  Report Type: Spontaneous
  Country: CN (occurrence: CN)
  Receive Date: 20250509
  Receipt Date: 20250509
  Transmission Date: 20250717
  Serious: No
  Sender: ANI
  Company Number: None

PATIENT
  Age: 75 Year
  Sex: Male
  Weight: 47 kg

DRUGS (4)
  1. FLUVOXAMINE MALEATE [Suspect]
     Active Substance: FLUVOXAMINE MALEATE
     Indication: Affective disorder
     Route: 048
     Dates: start: 20250304, end: 20250306
  2. FLUVOXAMINE MALEATE [Suspect]
     Active Substance: FLUVOXAMINE MALEATE
     Indication: Affective disorder
     Route: 048
     Dates: start: 20250306
  3. FLUVOXAMINE MALEATE [Suspect]
     Active Substance: FLUVOXAMINE MALEATE
     Indication: Increased need for sleep
     Route: 048
     Dates: start: 20250304, end: 20250306
  4. FLUVOXAMINE MALEATE [Suspect]
     Active Substance: FLUVOXAMINE MALEATE
     Indication: Increased need for sleep
     Route: 048
     Dates: start: 20250306

REACTIONS (1)
  - Gastrointestinal disorder [Unknown]

NARRATIVE: CASE EVENT DATE: 20250306
